FAERS Safety Report 10691146 (Version 3)
Quarter: 2016Q2

REPORT INFORMATION
  Report Type: Spontaneous
  Country: FR (occurrence: FR)
  Receive Date: 20150105
  Receipt Date: 20160427
  Transmission Date: 20160815
  Serious: Yes (Hospitalization)
  Sender: FDA-Public Use
  Company Number: FR-PFIZER INC-2014361647

PATIENT
  Age: 63 Year
  Sex: Male

DRUGS (5)
  1. IZILOX [Suspect]
     Active Substance: MOXIFLOXACIN HYDROCHLORIDE
     Dosage: 400 MG, 1X/DAY
     Route: 048
     Dates: start: 20141013
  2. CYCLOSERINE. [Concomitant]
     Active Substance: CYCLOSERINE
     Dosage: 250 MG, 2X/DAY
     Route: 048
     Dates: start: 20141013, end: 20141126
  3. ZYVOXID [Suspect]
     Active Substance: LINEZOLID
     Indication: TUBERCULOSIS
     Dosage: 600 MG, 1X/DAY
     Route: 048
     Dates: start: 20141013, end: 201412
  4. PASER [Suspect]
     Active Substance: AMINOSALICYLIC ACID
     Dosage: 150 MG/KG, 1X/DAY
     Route: 048
     Dates: start: 20141013
  5. AMIKACINE MYLAN [Suspect]
     Active Substance: AMIKACIN
     Indication: TUBERCULOSIS
     Dosage: 10 MG/KG, 1X/DAY
     Route: 041
     Dates: start: 20141013, end: 20141209

REACTIONS (1)
  - Hypoacusis [Unknown]

NARRATIVE: CASE EVENT DATE: 201410
